FAERS Safety Report 17113484 (Version 1)
Quarter: 2019Q4

REPORT INFORMATION
  Report Type: Spontaneous
  Country: ES (occurrence: ES)
  Receive Date: 20191205
  Receipt Date: 20191205
  Transmission Date: 20200122
  Serious: Yes (Other)
  Sender: FDA-Public Use
  Company Number: ES-009507513-1912ESP000342

PATIENT
  Sex: Male
  Weight: 37.9 kg

DRUGS (1)
  1. SINGULAIR [Suspect]
     Active Substance: MONTELUKAST SODIUM
     Indication: MITE ALLERGY
     Dosage: 1 TABLET, EVERY 24 HOURS; 28 TABLETS
     Route: 048
     Dates: start: 20190202, end: 20190707

REACTIONS (2)
  - Hyperphagia [Recovered/Resolved]
  - Somnolence [Recovered/Resolved]

NARRATIVE: CASE EVENT DATE: 20190204
